FAERS Safety Report 25160091 (Version 1)
Quarter: 2025Q2

REPORT INFORMATION
  Report Type: Spontaneous
  Country: DE (occurrence: DE)
  Receive Date: 20250404
  Receipt Date: 20250404
  Transmission Date: 20250717
  Serious: Yes (Other)
  Sender: BAYER
  Company Number: DE-BAYER-2025A043721

PATIENT
  Age: 34 Year
  Sex: Female

DRUGS (2)
  1. CIPROFLOXACIN HYDROCHLORIDE [Suspect]
     Active Substance: CIPROFLOXACIN HYDROCHLORIDE
     Indication: Pneumonia klebsiella
     Route: 064
  2. CIPROFLOXACIN [Suspect]
     Active Substance: CIPROFLOXACIN
     Indication: Pneumonia klebsiella
     Route: 048

REACTIONS (5)
  - Pathogen resistance [None]
  - Maternal exposure during pregnancy [None]
  - Contraindicated product administered [None]
  - Incorrect route of product administration [None]
  - Premature delivery [None]
